FAERS Safety Report 9441938 (Version 1)
Quarter: 2013Q3

REPORT INFORMATION
  Report Type: Spontaneous
  Country: None (occurrence: None)
  Receive Date: 20130801
  Receipt Date: 20130801
  Transmission Date: 20140515
  Serious: Yes (Hospitalization)
  Sender: FDA-Public Use
  Company Number: 2013GMK006313

PATIENT
  Age: 81 Year
  Sex: Female

DRUGS (6)
  1. MONTELUKAST [Suspect]
     Indication: ASTHMA
     Dosage: 10 MG, OD, ORAL
     Route: 048
     Dates: start: 20130625, end: 20130703
  2. BENDROFLUMETHIAZIDE ( BENDROFLUMETHIAZIDE) [Concomitant]
  3. BUDESONIDE W/FORMOTEROL FUMARATE ( BUDESONIDE, FORMOTEROL FUMARATE) [Concomitant]
  4. IRBESARTAN ( IRBESARTAN) [Concomitant]
  5. SALBUTAMOL ( SALBUTAMOL) [Concomitant]
  6. WARFARIN ( WARFARIN) [Concomitant]

REACTIONS (1)
  - Dyspnoea [None]
